FAERS Safety Report 7322489-0 (Version None)
Quarter: 2011Q1

REPORT INFORMATION
  Report Type: 
  Country: None (occurrence: None)
  Receive Date: 20110301
  Receipt Date: 20100907
  Transmission Date: 20110831
  Serious: Yes (Other)
  Sender: FDA-Public Use
  Company Number: US-BAYER-201014976NA

PATIENT
  Sex: Female
  Weight: 57 kg

DRUGS (11)
  1. NSAID'S [Concomitant]
     Route: 065
  2. DICYCLOMINE [Concomitant]
  3. OCELLA [Suspect]
     Indication: PRODUCT USED FOR UNKNOWN INDICATION
     Route: 048
     Dates: start: 20070101, end: 20090101
  4. MUPIROCIN [Concomitant]
  5. EXCEDRIN (MIGRAINE) [Concomitant]
     Route: 065
  6. TORADOL [Concomitant]
     Indication: BILIARY COLIC
     Route: 065
  7. VICODIN [Concomitant]
     Indication: BILIARY COLIC
  8. YAZ [Suspect]
     Indication: PRODUCT USED FOR UNKNOWN INDICATION
     Dosage: AS USED DOSE: UNK
     Route: 048
     Dates: start: 20070601, end: 20090315
  9. NUBAIN [Concomitant]
  10. OXYCODONE [Concomitant]
  11. SULFAMETHOXAZOLE AND TRIMETHOPRIM DOUBLE STRENGTH [Concomitant]

REACTIONS (6)
  - ABDOMINAL PAIN UPPER [None]
  - GASTROOESOPHAGEAL REFLUX DISEASE [None]
  - DYSPEPSIA [None]
  - CHOLELITHIASIS [None]
  - NAUSEA [None]
  - WEIGHT DECREASED [None]
